FAERS Safety Report 23363640 (Version 4)
Quarter: 2024Q1

REPORT INFORMATION
  Report Type: Spontaneous
  Country: US (occurrence: US)
  Receive Date: 20240103
  Receipt Date: 20240313
  Transmission Date: 20240409
  Serious: Yes (Other)
  Sender: FDA-Public Use
  Company Number: US-JNJFOC-20231274011

PATIENT
  Age: 73 Year
  Sex: Female

DRUGS (2)
  1. REMICADE [Suspect]
     Active Substance: INFLIXIMAB
     Indication: Rheumatoid arthritis
     Route: 041
  2. INFLECTRA [Suspect]
     Active Substance: INFLIXIMAB-DYYB
     Indication: Rheumatoid arthritis
     Route: 041
     Dates: start: 20230213

REACTIONS (6)
  - Disability [Unknown]
  - Rheumatoid arthritis [Not Recovered/Not Resolved]
  - Joint effusion [Unknown]
  - Product dose omission issue [Unknown]
  - Drug intolerance [Unknown]
  - Drug ineffective [Unknown]
